FAERS Safety Report 9735265 (Version 3)
Quarter: 2013Q4

REPORT INFORMATION
  Report Type: Report from Study
  Country: JP (occurrence: JP)
  Receive Date: 20131206
  Receipt Date: 20131231
  Transmission Date: 20140711
  Serious: Yes (Death, Other)
  Sender: FDA-Public Use
  Company Number: JP-PFIZER INC-2013307944

PATIENT
  Age: 40 Year
  Sex: Male
  Weight: 64.8 kg

DRUGS (14)
  1. INOTUZUMAB OZOGAMICIN [Suspect]
     Indication: ACUTE LYMPHOCYTIC LEUKAEMIA
     Dosage: 1.42 MG, WEEKLY IN 3-4 WEEK CYCLES
     Route: 042
     Dates: start: 20131022, end: 20131028
  2. VANCOMYCIN [Suspect]
     Indication: NEUTROPENIC SEPSIS
     Dosage: 1.5 G, 1X/DAY
     Route: 042
     Dates: start: 20131027, end: 20131107
  3. TAKEPRON [Suspect]
     Indication: PROPHYLAXIS AGAINST GASTROINTESTINAL ULCER
     Dosage: 30 MG, UNK
     Route: 041
     Dates: start: 20131027, end: 20131108
  4. HUMULIN R [Suspect]
     Indication: HYPERGLYCAEMIA
     Dosage: 50 IU, AS NEEDED
     Route: 041
     Dates: start: 20131102, end: 20131109
  5. LACTEC [Suspect]
     Indication: FLUID REPLACEMENT
     Dosage: 500 ML, AS NEEDED
     Route: 041
     Dates: start: 20131027, end: 20131109
  6. NICARDIPINE [Suspect]
     Indication: HYPERTENSION
     Dosage: 30 MG, AS NEEDED
     Route: 041
     Dates: start: 20131103, end: 20131109
  7. UNSPECIFIED INGREDIENTS [Suspect]
     Indication: FLUID REPLACEMENT
     Dosage: 500 ML, AS NEEDED
     Route: 041
     Dates: start: 20131102, end: 20131106
  8. MEROPEN [Suspect]
     Indication: NEUTROPENIC SEPSIS
     Dosage: 1 G, UNK
     Route: 041
     Dates: start: 20131027, end: 20131108
  9. HYDROCORTONE [Suspect]
     Indication: PYREXIA
     Dosage: 50 MG, UNK
     Route: 041
     Dates: start: 20131027, end: 20131109
  10. GLYCEOL [Suspect]
     Indication: BRAIN OEDEMA
     Dosage: 200 ML, 1X/DAY
     Route: 041
     Dates: start: 20131030, end: 20131109
  11. GRAN [Suspect]
     Indication: NEUTROPENIA
     Dosage: 75 UG, 1X/DAY
     Route: 058
     Dates: start: 20131025, end: 20131108
  12. CHLORTRIMETON [Suspect]
     Dosage: 10 MG, 1X/DAY
     Dates: start: 20131022, end: 20131107
  13. BFLUID [Suspect]
     Indication: FLUID REPLACEMENT
     Dosage: 500 ML, AS NEEDED
     Route: 041
     Dates: start: 20131102, end: 20131106
  14. FENTANYL CITRATE [Concomitant]
     Indication: SEDATIVE THERAPY
     Dosage: 1 MG, 1X/DAY
     Route: 042
     Dates: start: 20131027

REACTIONS (2)
  - Neutropenic sepsis [Fatal]
  - Venoocclusive liver disease [Not Recovered/Not Resolved]
